FAERS Safety Report 10092030 (Version 2)
Quarter: 2014Q2

REPORT INFORMATION
  Report Type: Spontaneous
  Country: US (occurrence: US)
  Receive Date: 20140421
  Receipt Date: 20140421
  Transmission Date: 20141212
  Serious: No
  Sender: FDA-Public Use
  Company Number: US-GILEAD-2013-0070812

PATIENT
  Age: 36 Year
  Sex: Male
  Weight: 379 kg

DRUGS (29)
  1. GLIMEPERIDE [Concomitant]
  2. INVEGA                             /05724801/ [Concomitant]
  3. KLONOPIN [Concomitant]
  4. METHOCARBAMOL [Concomitant]
  5. TIZANADINE [Concomitant]
  6. B VITAMIN COMP                     /00003501/ [Concomitant]
  7. DIPHENHYDRAMINE                    /00000402/ [Concomitant]
  8. ZOLPIDEM [Concomitant]
  9. DILTIAZEM [Concomitant]
  10. OLOPATADINE [Concomitant]
  11. TOPIRAMATE [Concomitant]
  12. LETAIRIS [Suspect]
     Indication: PRODUCT USED FOR UNKNOWN INDICATION
     Dosage: 10 MG, QD
     Dates: start: 20130111
  13. LETAIRIS [Suspect]
     Dosage: 5 UNK, UNK
  14. FENTANYL [Concomitant]
  15. NEURONTIN [Concomitant]
  16. RAPAFLO [Concomitant]
  17. ZYRTEC [Concomitant]
  18. ASPIRIN [Concomitant]
  19. TRAMADOL [Concomitant]
  20. TRILIPIX [Concomitant]
  21. TOPIRAMATE [Concomitant]
  22. METOLAZONE [Concomitant]
  23. LOSARTAN [Concomitant]
  24. LORTAB                             /00607101/ [Concomitant]
  25. LEVOTHYROXINE [Concomitant]
  26. ADCIRCA [Concomitant]
  27. AMLODIPINE [Concomitant]
  28. CYMBALTA [Concomitant]
  29. FUROSEMIDE [Concomitant]

REACTIONS (3)
  - Oedema peripheral [Recovered/Resolved]
  - Dizziness [Recovered/Resolved]
  - Oedema [Recovered/Resolved]
